FAERS Safety Report 4762682-4 (Version None)
Quarter: 2005Q3

REPORT INFORMATION
  Report Type: 
  Country: None (occurrence: None)
  Receive Date: 20050906
  Receipt Date: 20050407
  Transmission Date: 20060218
  Serious: Yes (Other)
  Sender: FDA-Public Use
  Company Number: ADE 05-PC052

PATIENT
  Sex: Female

DRUGS (1)
  1. NYSTOP [Suspect]
     Dosage: TOPICAL
     Route: 061

REACTIONS (2)
  - RASH ERYTHEMATOUS [None]
  - RASH PRURITIC [None]
